FAERS Safety Report 24144623 (Version 2)
Quarter: 2024Q4

REPORT INFORMATION
  Report Type: Report from Study
  Country: US (occurrence: US)
  Receive Date: 20240728
  Receipt Date: 20241005
  Transmission Date: 20250114
  Serious: Yes (Other)
  Sender: ABBVIE
  Company Number: US-ABBVIE-5852876

PATIENT
  Sex: Female

DRUGS (2)
  1. SKYRIZI [Suspect]
     Active Substance: RISANKIZUMAB-RZAA
     Indication: Psoriasis
     Route: 058
     Dates: start: 20240813
  2. SKYRIZI [Suspect]
     Active Substance: RISANKIZUMAB-RZAA
     Route: 058
     Dates: end: 202404

REACTIONS (4)
  - Oophorectomy [Recovered/Resolved]
  - Intra-abdominal fluid collection [Not Recovered/Not Resolved]
  - Hernia [Unknown]
  - Pain [Unknown]

NARRATIVE: CASE EVENT DATE: 20240101
